FAERS Safety Report 9166693 (Version 2)
Quarter: 2013Q3

REPORT INFORMATION
  Report Type: Report from Study
  Country: NL (occurrence: NL)
  Receive Date: 20130315
  Receipt Date: 20130829
  Transmission Date: 20140515
  Serious: Yes (Other)
  Sender: FDA-Public Use
  Company Number: NL-ABBOTT-13P-114-1060847-00

PATIENT
  Age: 41 Year
  Sex: Female
  Weight: 88 kg

DRUGS (3)
  1. LUCRIN [Suspect]
     Indication: ENDOMETRIOSIS
     Route: 058
     Dates: start: 20120424
  2. LUCRIN [Suspect]
     Dates: start: 2003, end: 2007
  3. LEVOTHYROXINE [Concomitant]
     Indication: THYROID DISORDER
     Route: 048
     Dates: start: 2005

REACTIONS (10)
  - Hypertension [Unknown]
  - Skin discolouration [Recovered/Resolved]
  - Injection site reaction [Recovered/Resolved]
  - Weight increased [Not Recovered/Not Resolved]
  - Menstrual disorder [Recovered/Resolved]
  - Injection site erythema [Unknown]
  - Injection site swelling [Unknown]
  - Injection site induration [Unknown]
  - Injection site pain [Unknown]
  - Weight decreased [Recovered/Resolved]
